FAERS Safety Report 7596747-9 (Version None)
Quarter: 2011Q3

REPORT INFORMATION
  Report Type: 
  Country: None (occurrence: None)
  Receive Date: 20110708
  Receipt Date: 20110705
  Transmission Date: 20111222
  Serious: No
  Sender: FDA-Public Use
  Company Number: US-PFIZER INC-2011151785

PATIENT
  Sex: Male
  Weight: 95.238 kg

DRUGS (5)
  1. DILANTIN [Concomitant]
     Indication: EPILEPSY
     Dosage: 530 MG, DAILY
  2. PHENYTOIN SODIUM [Suspect]
     Indication: EPILEPSY
     Dosage: UNK
  3. QUINAPRIL [Concomitant]
     Indication: BLOOD PRESSURE ABNORMAL
     Dosage: 10 MG, UNK
     Route: 048
  4. PHENOBARBITAL [Concomitant]
     Indication: EPILEPSY
     Dosage: 69 MG, 2X/DAY
     Route: 048
  5. WARFARIN [Concomitant]
     Indication: COAGULOPATHY
     Dosage: 10 MG, UNK
     Route: 048

REACTIONS (2)
  - DRUG INEFFECTIVE [None]
  - DRUG LEVEL DECREASED [None]
